FAERS Safety Report 5418375-3 (Version None)
Quarter: 2007Q3

REPORT INFORMATION
  Report Type: 
  Country: None (occurrence: None)
  Receive Date: 20070817
  Receipt Date: 20070807
  Transmission Date: 20080115
  Serious: Yes (Hospitalization)
  Sender: FDA-Public Use
  Company Number: US-SANOFI-SYNTHELABO-A03200705026

PATIENT
  Age: 68 Year
  Sex: Female

DRUGS (3)
  1. REGLAN [Concomitant]
     Dosage: UNK
     Route: 065
  2. METFORMIN HCL [Concomitant]
     Dosage: UNK
     Route: 048
  3. ELOXATIN [Suspect]
     Indication: COLORECTAL CANCER METASTATIC
     Route: 042
     Dates: start: 20070731, end: 20070731

REACTIONS (3)
  - CHEST PAIN [None]
  - CORONARY ARTERY OCCLUSION [None]
  - PLATELET COUNT DECREASED [None]
